FAERS Safety Report 4653471-X (Version None)
Quarter: 2005Q2

REPORT INFORMATION
  Report Type: 
  Country: None (occurrence: None)
  Receive Date: 20050505
  Receipt Date: 20050420
  Transmission Date: 20051028
  Serious: Yes (Hospitalization)
  Sender: FDA-Public Use
  Company Number: JP-GLAXOSMITHKLINE-B0378858A

PATIENT
  Age: 35 Year
  Sex: Female

DRUGS (2)
  1. PROPADERM [Suspect]
     Indication: DERMATITIS
     Route: 061
     Dates: end: 20041001
  2. DIFLORASONE DIACETATE [Suspect]
     Indication: DERMATITIS
     Route: 061
     Dates: start: 20041001

REACTIONS (8)
  - ABSCESS [None]
  - DERMATITIS [None]
  - ERYTHEMA MULTIFORME [None]
  - IMPETIGO HERPETIFORMIS [None]
  - NORMAL DELIVERY [None]
  - PIGMENTATION DISORDER [None]
  - PRURITUS [None]
  - RASH [None]
